FAERS Safety Report 25128731 (Version 1)
Quarter: 2025Q1

REPORT INFORMATION
  Report Type: Spontaneous
  Country: US (occurrence: US)
  Receive Date: 20250327
  Receipt Date: 20250327
  Transmission Date: 20250409
  Serious: No
  Sender: SANOFI AVENTIS
  Company Number: US-SANOFI-02458315

PATIENT
  Age: 43 Year
  Sex: Male

DRUGS (1)
  1. LANTUS SOLOSTAR [Suspect]
     Active Substance: INSULIN GLARGINE
     Route: 065
     Dates: start: 20250321, end: 20250321

REACTIONS (2)
  - Injury associated with device [Unknown]
  - Device use error [Unknown]

NARRATIVE: CASE EVENT DATE: 20250321
